FAERS Safety Report 8791497 (Version 1)
Quarter: 2012Q4

REPORT INFORMATION
  Report Type: Spontaneous
  Country: US (occurrence: None)
  Receive Date: 20120914
  Receipt Date: 20120914
  Transmission Date: 20130627
  Serious: Yes (Other)
  Sender: FDA-Public Use
  Company Number: None

PATIENT
  Sex: Male
  Weight: 72.58 kg

DRUGS (1)
  1. KOMBIGLYZE XR [Suspect]
     Indication: BLOOD SUGAR INCREASED
     Dosage: 1 tablet daily
     Dates: start: 20120502, end: 20120727

REACTIONS (1)
  - Ageusia [None]
